FAERS Safety Report 7786595-9 (Version None)
Quarter: 2011Q3

REPORT INFORMATION
  Report Type: 
  Country: None (occurrence: None)
  Receive Date: 20110929
  Receipt Date: 20110916
  Transmission Date: 20111222
  Serious: Yes (Hospitalization)
  Sender: FDA-Public Use
  Company Number: US-ELI_LILLY_AND_COMPANY-US201108005971

PATIENT
  Sex: Female

DRUGS (4)
  1. SYNTHROID [Concomitant]
     Dosage: 75 UG, QD
     Route: 048
  2. DEPAKOTE [Concomitant]
     Dosage: 1500 MG, EVERY NIGHT AT BEDTIME
     Route: 048
  3. ZYPREXA RELPREVV [Suspect]
     Indication: SCHIZOPHRENIA
     Dosage: 405 MG, MONTHLY
     Route: 030
     Dates: start: 20110622, end: 20110622
  4. ASPIRIN [Concomitant]
     Dosage: 81 MG QD

REACTIONS (2)
  - DRUG INEFFECTIVE [None]
  - PSYCHIATRIC DECOMPENSATION [None]
